FAERS Safety Report 12991381 (Version 3)
Quarter: 2017Q2

REPORT INFORMATION
  Report Type: Spontaneous
  Country: FR (occurrence: FR)
  Receive Date: 20161201
  Receipt Date: 20170509
  Transmission Date: 20170830
  Serious: Yes (Other)
  Sender: FDA-Public Use
  Company Number: FR-CELGENEUS-FRA-2016114982

PATIENT
  Age: 27 Year
  Sex: Female

DRUGS (3)
  1. ISTODAX [Suspect]
     Active Substance: ROMIDEPSIN
     Indication: MYCOSIS FUNGOIDES
  2. ISTODAX [Suspect]
     Active Substance: ROMIDEPSIN
     Indication: MYCOSIS FUNGOIDES
     Dosage: 20 MG(14 MG/M2)
     Route: 041
     Dates: start: 20160613, end: 20161005
  3. CLAIYRIG [Concomitant]
     Indication: IMMUNODEFICIENCY
     Dosage: 30 G
     Route: 065
     Dates: start: 2010

REACTIONS (2)
  - Hot flush [Unknown]
  - Amenorrhoea [Not Recovered/Not Resolved]

NARRATIVE: CASE EVENT DATE: 201606
